FAERS Safety Report 8825925 (Version 2)
Quarter: 2012Q4

REPORT INFORMATION
  Report Type: 
  Country: IT (occurrence: IT)
  Receive Date: 20121005
  Receipt Date: 20121011
  Transmission Date: 20130627
  Serious: Yes (Hospitalization)
  Sender: FDA-Public Use
  Company Number: IT-BRISTOL-MYERS SQUIBB COMPANY-17000720

PATIENT
  Age: 79 Year
  Sex: Male

DRUGS (12)
  1. COUMADIN TABS 5 MG [Suspect]
     Indication: ATRIAL FIBRILLATION
     Dosage: Interrupted on 19Sep12
     Route: 048
     Dates: start: 20100922
  2. AMIODARONE [Suspect]
     Indication: ATRIAL FIBRILLATION
     Route: 048
     Dates: start: 20120803, end: 20120919
  3. MERREM [Suspect]
     Indication: BRONCHOPNEUMONIA
     Route: 042
     Dates: start: 20120915, end: 20120919
  4. TARGOSID [Suspect]
     Indication: BRONCHOPNEUMONIA
     Dosage: on alternate days
     Route: 042
     Dates: start: 20120915, end: 20120919
  5. NEXIUM [Concomitant]
  6. ZOLOFT [Concomitant]
  7. AVODART [Concomitant]
  8. ZYLORIC [Concomitant]
  9. TORVAST [Concomitant]
  10. LYRICA [Concomitant]
  11. IDROPLURIVIT [Concomitant]
  12. TACHIPIRINA [Concomitant]

REACTIONS (1)
  - Hypocoagulable state [Recovered/Resolved]
